FAERS Safety Report 26161162 (Version 1)
Quarter: 2025Q4

REPORT INFORMATION
  Report Type: Spontaneous
  Country: US (occurrence: US)
  Receive Date: 20251216
  Receipt Date: 20251216
  Transmission Date: 20260118
  Serious: No
  Sender: ALVOGEN
  Company Number: US-ALVOGEN-2024096028

PATIENT
  Sex: Male

DRUGS (1)
  1. FENTANYL [Suspect]
     Active Substance: FENTANYL
     Indication: Product used for unknown indication
     Dosage: 50 MG/HR; RECEIVED 2 BOXES, EXPIRY: MAY-2027?SECOND TIME OF RECEIVING COMPANY PRODUCT
     Route: 062

REACTIONS (2)
  - Device adhesion issue [Unknown]
  - Device malfunction [Unknown]
